FAERS Safety Report 15656574 (Version 1)
Quarter: 2018Q4

REPORT INFORMATION
  Report Type: Spontaneous
  Country: RU (occurrence: RU)
  Receive Date: 20181126
  Receipt Date: 20181126
  Transmission Date: 20190205
  Serious: Yes (Other)
  Sender: FDA-Public Use
  Company Number: RU-SAKK-2018SA314141AA

PATIENT
  Age: 30 Year
  Sex: Male

DRUGS (4)
  1. TOUJEO [Suspect]
     Active Substance: INSULIN GLARGINE
     Dosage: 20 U, UNK
     Route: 058
  2. APIDRA [Concomitant]
     Active Substance: INSULIN GLULISINE
     Dosage: UNKNOWN
  3. NOVORAPID [Concomitant]
     Active Substance: INSULIN ASPART
     Dosage: UNKNOWN
  4. LANTUS [Concomitant]
     Active Substance: INSULIN GLARGINE
     Dosage: UNKNOWN

REACTIONS (3)
  - Headache [Unknown]
  - Lethargy [Unknown]
  - Disturbance in attention [Unknown]
